FAERS Safety Report 25255249 (Version 2)
Quarter: 2025Q3

REPORT INFORMATION
  Report Type: Spontaneous
  Country: JP (occurrence: JP)
  Receive Date: 20250430
  Receipt Date: 20250809
  Transmission Date: 20251021
  Serious: Yes (Hospitalization, Other)
  Sender: ALEXION PHARMACEUTICALS
  Company Number: JP-ASTRAZENECA-250040555_010520_P_1

PATIENT
  Sex: Female

DRUGS (3)
  1. FASLODEX [Suspect]
     Active Substance: FULVESTRANT
     Indication: Breast cancer
     Dosage: 500 MILLIGRAM, Q4W
     Dates: start: 20250218
  2. FASLODEX [Suspect]
     Active Substance: FULVESTRANT
  3. TRUQAP [Suspect]
     Active Substance: CAPIVASERTIB
     Indication: Breast cancer
     Dosage: DRUG ADMINISTRATION FOR 4 DAYS IN A ROW, FOLLOWED BY 3 DAYS OFF
     Dates: start: 20250219, end: 202504

REACTIONS (4)
  - Pyrexia [Recovered/Resolved]
  - Hyperglycaemia [Recovered/Resolved]
  - Diverticulitis [Unknown]
  - Abdominal pain upper [Unknown]
